FAERS Safety Report 13446902 (Version 2)
Quarter: 2017Q2

REPORT INFORMATION
  Report Type: Spontaneous
  Country: US (occurrence: US)
  Receive Date: 20170417
  Receipt Date: 20170424
  Transmission Date: 20170830
  Serious: Yes (Other)
  Sender: FDA-Public Use
  Company Number: US-PFIZER INC-2017158097

PATIENT
  Age: 69 Year
  Sex: Female
  Weight: 79.37 kg

DRUGS (2)
  1. VIAGRA [Suspect]
     Active Substance: SILDENAFIL CITRATE
     Indication: SEXUAL DYSFUNCTION
     Dosage: 100 MG, AS NEEDED
     Route: 050
  2. LANTUS [Concomitant]
     Active Substance: INSULIN GLARGINE
     Indication: DIABETES MELLITUS
     Dosage: UNK, (SLIDING SCALE)
     Dates: start: 2000

REACTIONS (5)
  - Blood glucose increased [Not Recovered/Not Resolved]
  - Pain [Unknown]
  - Rash vesicular [Recovering/Resolving]
  - Anorectal discomfort [Recovering/Resolving]
  - Exposure via partner [Unknown]

NARRATIVE: CASE EVENT DATE: 20170330
